FAERS Safety Report 12668321 (Version 2)
Quarter: 2016Q4

REPORT INFORMATION
  Report Type: Report from Study
  Country: GB (occurrence: GB)
  Receive Date: 20160819
  Receipt Date: 20161221
  Transmission Date: 20170207
  Serious: Yes (Death, Hospitalization, Other)
  Sender: FDA-Public Use
  Company Number: PHFR2016GB006704

PATIENT
  Age: 65 Year
  Sex: Male
  Weight: 67.8 kg

DRUGS (1)
  1. AFINITOR [Suspect]
     Active Substance: EVEROLIMUS
     Indication: PANCREATIC NEUROENDOCRINE TUMOUR
     Route: 048

REACTIONS (5)
  - Renal impairment [Unknown]
  - Pulmonary sepsis [Fatal]
  - Acute kidney injury [Fatal]
  - Diarrhoea [Fatal]
  - Vomiting [Fatal]

NARRATIVE: CASE EVENT DATE: 20160311
